FAERS Safety Report 16761030 (Version 1)
Quarter: 2019Q3

REPORT INFORMATION
  Report Type: Spontaneous
  Country: JP (occurrence: JP)
  Receive Date: 20190830
  Receipt Date: 20190830
  Transmission Date: 20191005
  Serious: Yes (Hospitalization)
  Sender: FDA-Public Use
  Company Number: JP-ASTRAZENECA-2019SE46518

PATIENT
  Age: 78 Year
  Sex: Male
  Weight: 53 kg

DRUGS (2)
  1. IMFINZI [Suspect]
     Active Substance: DURVALUMAB
     Indication: NON-SMALL CELL LUNG CANCER
     Route: 041
     Dates: start: 20180918, end: 20190224
  2. CALONAL [Concomitant]
     Active Substance: ACETAMINOPHEN
     Indication: PAIN
     Dosage: 300.0MG UNKNOWN
     Route: 048
     Dates: start: 20181002

REACTIONS (4)
  - Interstitial lung disease [Recovering/Resolving]
  - Liver disorder [Recovered/Resolved]
  - Musculoskeletal disorder [Recovering/Resolving]
  - Blood bilirubin increased [Unknown]

NARRATIVE: CASE EVENT DATE: 201810
